FAERS Safety Report 5123081-9 (Version None)
Quarter: 2006Q4

REPORT INFORMATION
  Report Type: 
  Country: None (occurrence: None)
  Receive Date: 20061005
  Receipt Date: 20060926
  Transmission Date: 20070319
  Serious: Yes (Other)
  Sender: FDA-Public Use
  Company Number: 2006115424

PATIENT
  Age: 82 Year
  Sex: Male
  Weight: 99.7913 kg

DRUGS (1)
  1. SUDAFED PE SINUS HEADACHE CAPLET (ACETAMINOPHEN, PHENYLEPHRINE HYDROCH [Suspect]
     Indication: SINUS CONGESTION
     Dosage: 1 CAPLET ONCE DAILY, ORAL
     Route: 048
     Dates: start: 20060601

REACTIONS (1)
  - PROSTATE EXAMINATION ABNORMAL [None]
